FAERS Safety Report 8481720-9 (Version None)
Quarter: 2012Q3

REPORT INFORMATION
  Report Type: 
  Country: None (occurrence: None)
  Receive Date: 20120702
  Receipt Date: 20120620
  Transmission Date: 20120928
  Serious: Yes (Hospitalization)
  Sender: FDA-Public Use
  Company Number: US-ROCHE-1080292

PATIENT
  Age: 76 Year
  Sex: Male
  Weight: 74.55 kg

DRUGS (4)
  1. EVEROLIMUS [Suspect]
     Dosage: DOSE REDUCED
  2. EVEROLIMUS [Suspect]
     Indication: NEUROENDOCRINE TUMOUR
     Route: 048
  3. AVASTIN [Suspect]
     Indication: NEUROENDOCRINE TUMOUR
     Route: 042
     Dates: start: 20110616
  4. OCTREOTIDE ACETATE [Suspect]
     Indication: NEUROENDOCRINE TUMOUR
     Dosage: LAR:20 MG IM ON DAY 1
     Route: 030

REACTIONS (3)
  - HYPERKALAEMIA [None]
  - DEHYDRATION [None]
  - RENAL FAILURE ACUTE [None]
